FAERS Safety Report 7524484-5 (Version None)
Quarter: 2011Q2

REPORT INFORMATION
  Report Type: 
  Country: None (occurrence: None)
  Receive Date: 20110606
  Receipt Date: 20110511
  Transmission Date: 20111010
  Serious: Yes (Other)
  Sender: FDA-Public Use
  Company Number: US-BAYER-201021138NA

PATIENT
  Age: 26 Year
  Sex: Female
  Weight: 69.841 kg

DRUGS (11)
  1. YASMIN [Suspect]
     Indication: PREMENSTRUAL SYNDROME
  2. VALIUM [Concomitant]
  3. MARIJUANA [Concomitant]
     Dosage: UNK
     Dates: start: 20090601
  4. YASMIN [Suspect]
     Indication: ACNE
     Dosage: AS USED DOSE: UNK
     Route: 048
     Dates: start: 20010101, end: 20091201
  5. FIORICET [Concomitant]
  6. DROSPIRENONE AND ETHINYL ESTRADIOL [Suspect]
     Indication: ACNE
     Dosage: AS USED DOSE: UNK
     Route: 065
     Dates: start: 20010101, end: 20091201
  7. DROSPIRENONE AND ETHINYL ESTRADIOL [Suspect]
     Indication: PREMENSTRUAL SYNDROME
  8. SULFAMETHOXAZOLE AND TRIMETHOPRIM [Concomitant]
     Indication: URINARY TRACT INFECTION
  9. BARBITURATES [Concomitant]
  10. XANAX [Concomitant]
  11. ULTRAM [Concomitant]

REACTIONS (10)
  - GENITAL PAIN [None]
  - OVARIAN CYST [None]
  - GASTROOESOPHAGEAL REFLUX DISEASE [None]
  - DYSPAREUNIA [None]
  - ABDOMINAL PAIN [None]
  - CHOLECYSTITIS CHRONIC [None]
  - MENTAL DISORDER [None]
  - CHOLELITHIASIS [None]
  - DYSURIA [None]
  - PELVIC PAIN [None]
